FAERS Safety Report 5422302-2 (Version None)
Quarter: 2007Q3

REPORT INFORMATION
  Report Type: 
  Country: None (occurrence: None)
  Receive Date: 20070820
  Receipt Date: 20070808
  Transmission Date: 20080115
  Serious: Yes (Life-Threatening)
  Sender: FDA-Public Use
  Company Number: 2007-01996

PATIENT
  Sex: Female
  Weight: 50 kg

DRUGS (21)
  1. VELCADE [Suspect]
     Indication: MULTIPLE MYELOMA
     Dosage: 1.30 MG/M2, INTRAVENOUS
     Route: 042
     Dates: start: 20070612, end: 20070803
  2. CYCLOPHOSPHAMIDE [Suspect]
     Indication: MULTIPLE MYELOMA
     Dosage: 900.00 MG/M2, INTRAVENOUS
     Route: 042
     Dates: start: 20070612, end: 20070724
  3. DEXAMETHASONE [Suspect]
     Indication: MULTIPLE MYELOMA
     Dosage: 40.00 MG, ORAL
     Route: 048
     Dates: start: 20070612, end: 20070616
  4. PANTOZOL (PANTOPRAZOLE SODIUM) [Concomitant]
  5. NOVALGIN (METAMIZOLE SODIUM) [Concomitant]
  6. ALLOPURINOL [Concomitant]
  7. LENDORMIN (BROTIZOLAM) [Concomitant]
  8. DURAGESIC-100 [Concomitant]
  9. LASIX [Concomitant]
  10. MORPHINE SULFATE [Concomitant]
  11. DIMENHYDRINATE [Concomitant]
  12. MOVICOL (SODIUM BICARBONATE, SODIUM CHLORIDE, MACROGOL, POTASSIUM CHLO [Concomitant]
  13. HALOPERIDOL [Concomitant]
  14. LORAZEPAM [Concomitant]
  15. ZOLPIDEM TARTRATE [Concomitant]
  16. PRIMOLUT-N (NORETHISTERONE ACETATE) [Concomitant]
  17. ACICLOVR (ACICLOVIR) [Concomitant]
  18. MESNA [Concomitant]
  19. MCP (METOCLOPRAMIDE HYDROCHLORIDE) [Concomitant]
  20. ZOFRAN [Concomitant]
  21. EUGALAC (LACTULOSE) [Concomitant]

REACTIONS (1)
  - NEUTROPENIA [None]
